FAERS Safety Report 4109856 (Version 5)
Quarter: 2014Q3

REPORT INFORMATION
  Report Type: Report from Study
  Country: AU (occurrence: AU)
  Receive Date: 20040319
  Receipt Date: 20140706
  Transmission Date: 20150326
  Serious: Yes (Life-Threatening, Hospitalization, Other)
  Sender: FDA-Public Use
  Company Number: PHNR2004AU00757

PATIENT
  Age: 42 Year
  Sex: Male

DRUGS (21)
  1. CLOZARIL [Suspect]
     Active Substance: CLOZAPINE
     Dosage: 300 MG
     Route: 048
     Dates: start: 200807
  2. VALPROATE SODIUM. [Concomitant]
     Active Substance: VALPROATE SODIUM
     Dosage: 500 MG, BID
  3. ISOSORBIDE [Concomitant]
     Active Substance: ISOSORBIDE
  4. ASPIRIN. [Concomitant]
     Active Substance: ASPIRIN
     Dosage: 100 MG MANE
  5. BISOPROLOL [Concomitant]
     Active Substance: BISOPROLOL
     Dosage: 2.5 MG MANE
  6. ALCOHOL. [Concomitant]
     Active Substance: ALCOHOL
  7. IRON [Concomitant]
     Active Substance: IRON
     Dosage: 2 AT LUNCH TIME
  8. BENZTROPEINE [Concomitant]
     Active Substance: TROPINE BENZYLATE
     Dosage: 2 MG, UNK
  9. INSULIN [Concomitant]
     Active Substance: INSULIN NOS
  10. NICOTINE. [Concomitant]
     Active Substance: NICOTINE
  11. CALCIUM [Concomitant]
     Active Substance: CALCIUM
     Dosage: 1200 MG, BID
  12. CALTRATE [Concomitant]
     Active Substance: CALCIUM CARBONATE
  13. FLUOXETINE [Concomitant]
     Active Substance: FLUOXETINE\FLUOXETINE HYDROCHLORIDE
     Dosage: 20 MG DAILY
  14. ATORVASTATIN [Concomitant]
     Active Substance: ATORVASTATIN
     Dosage: 40 MG AT NIGHT
  15. CLOPIDOGREL [Concomitant]
     Active Substance: CLOPIDOGREL BISULFATE
     Dosage: 75 MG MANE
  16. CLOZARIL [Suspect]
     Active Substance: CLOZAPINE
     Indication: SCHIZOPHRENIA, PARANOID TYPE
     Dosage: 350 MG, DAILY
     Route: 048
     Dates: start: 19941116
  17. CLOZARIL [Suspect]
     Active Substance: CLOZAPINE
     Dosage: 350 MG, DAILY
     Route: 048
  18. LIPITOR [Concomitant]
     Active Substance: ATORVASTATIN CALCIUM
  19. ATENOLOL. [Concomitant]
     Active Substance: ATENOLOL
  20. FRUSEMIDE [Concomitant]
     Active Substance: FUROSEMIDE
     Dosage: 40 MG, BID
  21. COLOXYL WITH SENNA [Concomitant]
     Active Substance: DOCUSATE\SENNOSIDES
     Dosage: 2 TABS BD

REACTIONS (8)
  - Infectious pleural effusion [Recovering/Resolving]
  - Hepatic failure [Recovering/Resolving]
  - Nephropathy [Unknown]
  - Renal failure [Unknown]
  - Fluid overload [Unknown]
  - Pleural effusion [Recovering/Resolving]
  - Troponin increased [Unknown]
  - Schizophrenia [Unknown]

NARRATIVE: CASE EVENT DATE: 20040305
